FAERS Safety Report 10630459 (Version 2)
Quarter: 2014Q4

REPORT INFORMATION
  Report Type: Spontaneous
  Country: US (occurrence: US)
  Receive Date: 20141205
  Receipt Date: 20141205
  Transmission Date: 20150529
  Serious: No
  Sender: FDA-Public Use
  Company Number: US-BRISTOL-MYERS SQUIBB COMPANY-19337427

PATIENT
  Age: 57 Year
  Sex: Female
  Weight: 74.84 kg

DRUGS (7)
  1. SYMLIN [Suspect]
     Active Substance: PRAMLINTIDE ACETATE
     Indication: TYPE 2 DIABETES MELLITUS
     Dosage: DOSE UNIT:5
     Route: 058
     Dates: start: 20061011, end: 20061016
  2. NOVOLOG [Concomitant]
     Active Substance: INSULIN ASPART
     Dosage: DOSE UNIT:8
     Route: 058
  3. BYETTA [Suspect]
     Active Substance: EXENATIDE
     Indication: PRODUCT USED FOR UNKNOWN INDICATION
     Dosage: INJECTION
     Dates: end: 20061011
  4. NOVOLOG [Concomitant]
     Active Substance: INSULIN ASPART
     Dosage: DOSE UNIT:10
     Route: 058
  5. NOVOLIN N [Concomitant]
     Active Substance: INSULIN HUMAN
     Dosage: DOSE UNIT:38
     Route: 058
  6. SYMLIN [Suspect]
     Active Substance: PRAMLINTIDE ACETATE
     Indication: TYPE 2 DIABETES MELLITUS
     Dosage: DOSE UNIT:10?SYMLIN INJECTION
     Route: 058
     Dates: start: 20061017
  7. NOVOLIN N [Concomitant]
     Active Substance: INSULIN HUMAN
     Dosage: DOSE UNIT:30
     Route: 058

REACTIONS (3)
  - Blood glucose increased [Not Recovered/Not Resolved]
  - Malaise [Unknown]
  - Nausea [Not Recovered/Not Resolved]

NARRATIVE: CASE EVENT DATE: 20061011
